FAERS Safety Report 5934274-2 (Version None)
Quarter: 2008Q4

REPORT INFORMATION
  Report Type: 
  Country: None (occurrence: None)
  Receive Date: 20081029
  Receipt Date: 20081018
  Transmission Date: 20090506
  Serious: Yes (Hospitalization)
  Sender: FDA-Public Use
  Company Number: PHHY2008GB25750

PATIENT
  Sex: Male

DRUGS (1)
  1. CLOZARIL [Suspect]
     Indication: SCHIZOPHRENIA
     Dosage: 275MG DAILY
     Route: 048
     Dates: start: 20060516

REACTIONS (2)
  - ABNORMAL BEHAVIOUR [None]
  - HAEMATEMESIS [None]
